FAERS Safety Report 22072595 (Version 3)
Quarter: 2023Q1

REPORT INFORMATION
  Report Type: Other
  Country: IN (occurrence: None)
  Receive Date: 20230308
  Receipt Date: 20230321
  Transmission Date: 20230417
  Serious: Yes (Death, Other)
  Sender: FDA-Public Use
  Company Number: IN-ROCHE-3300878

PATIENT
  Age: 74 Year
  Sex: Female

DRUGS (1)
  1. PHESGO [Suspect]
     Active Substance: HYALURONIDASE-ZZXF\PERTUZUMAB\TRASTUZUMAB
     Indication: Breast cancer
     Route: 058
     Dates: start: 20230208

REACTIONS (4)
  - Pneumoperitoneum [Unknown]
  - Melaena [Unknown]
  - Intestinal perforation [Unknown]
  - Death [Fatal]

NARRATIVE: CASE EVENT DATE: 20230313
